FAERS Safety Report 12908216 (Version 2)
Quarter: 2017Q1

REPORT INFORMATION
  Report Type: Spontaneous
  Country: ZA (occurrence: ZA)
  Receive Date: 20161103
  Receipt Date: 20170103
  Transmission Date: 20170428
  Serious: Yes (Death, Hospitalization)
  Sender: FDA-Public Use
  Company Number: ZA-BAYER-2016-207398

PATIENT
  Age: 52 Year
  Sex: Male

DRUGS (1)
  1. STIVARGA [Suspect]
     Active Substance: REGORAFENIB
     Indication: RECTAL CANCER STAGE IV
     Dosage: 80 MG, QD
     Route: 048
     Dates: start: 20160125, end: 20160711

REACTIONS (4)
  - Off label use [None]
  - Anal fistula [None]
  - Renal failure [Fatal]
  - Rectal cancer stage IV [Fatal]

NARRATIVE: CASE EVENT DATE: 201603
